FAERS Safety Report 7872040-1 (Version None)
Quarter: 2011Q4

REPORT INFORMATION
  Report Type: 
  Country: None (occurrence: None)
  Receive Date: 20111029
  Receipt Date: 20110314
  Transmission Date: 20120403
  Serious: No
  Sender: FDA-Public Use
  Company Number: US-AMGEN-USASP2011014123

PATIENT
  Age: 53 Year
  Sex: Female

DRUGS (1)
  1. ENBREL [Suspect]
     Indication: RHEUMATOID ARTHRITIS
     Dates: start: 20110208

REACTIONS (9)
  - MIGRAINE [None]
  - OROPHARYNGEAL PAIN [None]
  - RHINORRHOEA [None]
  - BACK PAIN [None]
  - MOOD SWINGS [None]
  - ARTHRALGIA [None]
  - FATIGUE [None]
  - EPISTAXIS [None]
  - SINUS HEADACHE [None]
